FAERS Safety Report 6222981-6 (Version None)
Quarter: 2009Q2

REPORT INFORMATION
  Report Type: 
  Country: None (occurrence: None)
  Receive Date: 20090611
  Receipt Date: 20090602
  Transmission Date: 20091009
  Serious: Yes (Hospitalization, Other)
  Sender: FDA-Public Use
  Company Number: US-JNJFOC-20090501063

PATIENT
  Sex: Female
  Weight: 74.84 kg

DRUGS (8)
  1. REMICADE [Suspect]
     Route: 042
  2. REMICADE [Suspect]
     Indication: CROHN'S DISEASE
     Route: 042
  3. MERCAPTOPURINE [Concomitant]
     Indication: CROHN'S DISEASE
  4. CITRACAL [Concomitant]
     Dosage: TO PRESENT
  5. LOPID [Concomitant]
     Indication: HYPERLIPIDAEMIA
     Dosage: TO PRESENT
  6. VITAMIN B-12 [Concomitant]
     Indication: HYPOVITAMINOSIS
     Dosage: TO PRESENT
     Route: 058
  7. HORMONE REPLACEMENT [Concomitant]
     Indication: OSTEOPOROSIS PROPHYLAXIS
     Route: 048
  8. HORMONE REPLACEMENT [Concomitant]
     Indication: MENOPAUSE
     Route: 048

REACTIONS (2)
  - BREAST CANCER [None]
  - INTESTINAL STENOSIS [None]
